FAERS Safety Report 8377333-X (Version None)
Quarter: 2012Q2

REPORT INFORMATION
  Report Type: 
  Country: None (occurrence: None)
  Receive Date: 20120521
  Receipt Date: 20120507
  Transmission Date: 20120825
  Serious: Yes (Hospitalization, Other)
  Sender: FDA-Public Use
  Company Number: 20120185

PATIENT
  Age: 72 Year
  Sex: Male
  Weight: 86.1834 kg

DRUGS (11)
  1. SIMVASTATIN [Concomitant]
  2. FOLIC ACID [Concomitant]
  3. ASPIRIN [Concomitant]
  4. FERROUS SULFATE TAB [Concomitant]
  5. CHOLECALCIFEROL (VITAMIN D3) [Concomitant]
  6. TRAZODONE HCL [Concomitant]
  7. AMIODARONE HCL [Concomitant]
  8. LEVOTHYROXINE SODIUM [Concomitant]
  9. VENOFER [Suspect]
     Indication: IRON DEFICIENCY ANAEMIA
     Dosage: 200;20 MG, INTRAVENOUS BOLUS
     Route: 042
     Dates: start: 20120123, end: 20120123
  10. PAXIL [Concomitant]
  11. METOPROLOL [Concomitant]

REACTIONS (16)
  - CHEST PAIN [None]
  - HYPERHIDROSIS [None]
  - HEART RATE DECREASED [None]
  - TYPE II HYPERSENSITIVITY [None]
  - CHRONIC OBSTRUCTIVE PULMONARY DISEASE [None]
  - ELECTROCARDIOGRAM T WAVE ABNORMAL [None]
  - TREMOR [None]
  - BLOOD PRESSURE DECREASED [None]
  - HYPERKALAEMIA [None]
  - DEPRESSED LEVEL OF CONSCIOUSNESS [None]
  - PROTEINURIA [None]
  - BLOOD CREATINE INCREASED [None]
  - RESTLESSNESS [None]
  - BLOOD GLUCOSE INCREASED [None]
  - BLOOD UREA INCREASED [None]
  - ANXIETY [None]
